FAERS Safety Report 9681566 (Version 1)
Quarter: 2013Q4

REPORT INFORMATION
  Report Type: Spontaneous
  Country: US (occurrence: US)
  Receive Date: 20131111
  Receipt Date: 20131111
  Transmission Date: 20140711
  Serious: Yes (Other)
  Sender: FDA-Public Use
  Company Number: US-BAYER-2013-135194

PATIENT
  Age: 22 Year
  Sex: Female
  Weight: 63.49 kg

DRUGS (2)
  1. ALEVE TABLET [Suspect]
     Indication: ABDOMINAL PAIN
     Dosage: 4 DF, BID
     Route: 048
     Dates: start: 20131102
  2. ALEVE TABLET [Suspect]
     Indication: PELVIC PAIN
     Dosage: 2 DF, ONCE
     Dates: start: 20131103, end: 20131103

REACTIONS (4)
  - Feeling abnormal [Recovered/Resolved]
  - Feeling abnormal [Recovered/Resolved]
  - Overdose [None]
  - Feeling abnormal [Recovered/Resolved]
